FAERS Safety Report 8201010-9 (Version None)
Quarter: 2012Q1

REPORT INFORMATION
  Report Type: 
  Country: None (occurrence: None)
  Receive Date: 20120312
  Receipt Date: 20120307
  Transmission Date: 20120608
  Serious: Yes (Hospitalization, Other)
  Sender: FDA-Public Use
  Company Number: US-PFIZER INC-2012062139

PATIENT
  Sex: Female
  Weight: 81.63 kg

DRUGS (3)
  1. PROTONIX [Concomitant]
     Indication: GASTROOESOPHAGEAL REFLUX DISEASE
     Dosage: 40 MG, 1X/DAY
  2. ZOLOFT [Suspect]
     Indication: DEPRESSION
  3. ZOLOFT [Suspect]
     Indication: ANXIETY
     Dosage: 100 MG, 1X/DAY
     Dates: end: 20100101

REACTIONS (8)
  - FEELING ABNORMAL [None]
  - ANXIETY [None]
  - MYOCARDIAL INFARCTION [None]
  - EMOTIONAL DISTRESS [None]
  - DRUG INEFFECTIVE [None]
  - ANAEMIA [None]
  - DRUG TOLERANCE [None]
  - PANIC ATTACK [None]
